FAERS Safety Report 7866979-0 (Version None)
Quarter: 2011Q4

REPORT INFORMATION
  Report Type: 
  Country: None (occurrence: None)
  Receive Date: 20111028
  Receipt Date: 20111024
  Transmission Date: 20120403
  Serious: Yes (Life-Threatening, Hospitalization, Other)
  Sender: FDA-Public Use
  Company Number: US-ACTELION-A-US2011-43817

PATIENT

DRUGS (2)
  1. TRACLEER [Suspect]
     Indication: PULMONARY HYPERTENSION
     Dosage: 125 MG, BID
     Route: 048
     Dates: start: 20100929
  2. TRACLEER [Suspect]
     Dosage: 62.5 MG, BID
     Route: 048
     Dates: start: 20100829, end: 20100928

REACTIONS (6)
  - RESPIRATORY FAILURE [None]
  - DYSPNOEA [None]
  - RENAL FAILURE [None]
  - FLUID RETENTION [None]
  - PNEUMONIA [None]
  - DEHYDRATION [None]
